FAERS Safety Report 25103939 (Version 1)
Quarter: 2025Q1

REPORT INFORMATION
  Report Type: Spontaneous
  Country: US (occurrence: US)
  Receive Date: 20250321
  Receipt Date: 20250321
  Transmission Date: 20250409
  Serious: No
  Sender: TOLMAR
  Company Number: US-TOLMAR, INC.-25US057300

PATIENT
  Age: 78 Year
  Sex: Male

DRUGS (1)
  1. ELIGARD [Suspect]
     Active Substance: LEUPROLIDE ACETATE
     Indication: Prostate cancer
     Dosage: 22.5 MILLIGRAM, Q 3 MONTH
     Route: 058
     Dates: start: 20250303

REACTIONS (6)
  - Intercepted product preparation error [Unknown]
  - Product packaging quantity issue [Unknown]
  - Device occlusion [Unknown]
  - Syringe issue [Unknown]
  - Liquid product physical issue [Unknown]
  - Product colour issue [Unknown]

NARRATIVE: CASE EVENT DATE: 20250303
